FAERS Safety Report 10676839 (Version 1)
Quarter: 2014Q4

REPORT INFORMATION
  Report Type: Spontaneous
  Country: US (occurrence: US)
  Receive Date: 20141226
  Receipt Date: 20141226
  Transmission Date: 20150529
  Serious: No
  Sender: FDA-Public Use
  Company Number: US-BAXTER-2014BAX072156

PATIENT

DRUGS (1)
  1. 1.5% GLYCINE IRRIGATION, USP [Suspect]
     Active Substance: GLYCINE
     Indication: WRONG DRUG ADMINISTERED
     Route: 017

REACTIONS (2)
  - Wrong drug administered [Unknown]
  - No adverse event [Recovered/Resolved]
